FAERS Safety Report 9970076 (Version 2)
Quarter: 2015Q1

REPORT INFORMATION
  Report Type: Spontaneous
  Country: US (occurrence: None)
  Receive Date: 20140131
  Receipt Date: 20150129
  Transmission Date: 20150721
  Serious: Yes (Hospitalization)
  Sender: FDA-Public Use
  Company Number: 094793

PATIENT
  Age: 31 Year
  Sex: Male
  Weight: 88 kg

DRUGS (5)
  1. LYRICA [Concomitant]
     Active Substance: PREGABALIN
  2. DILANTIN [Concomitant]
     Active Substance: PHENYTOIN
  3. KEPPRA XR [Suspect]
     Active Substance: LEVETIRACETAM
     Indication: SEIZURE
     Dosage: STRENGTH: 500 MG, 6/DAY (3 TAB QAM AND 3 TAB QPM), EXPIRY DATE: 31/DEC/2015
  4. SEROQUEL [Concomitant]
     Active Substance: QUETIAPINE FUMARATE
  5. PROZAC (FLUOXETINE) [Concomitant]

REACTIONS (2)
  - Seizure [None]
  - Inappropriate schedule of drug administration [None]
